FAERS Safety Report 22033767 (Version 1)
Quarter: 2023Q1

REPORT INFORMATION
  Report Type: Report from Study
  Country: BR (occurrence: BR)
  Receive Date: 20230224
  Receipt Date: 20230224
  Transmission Date: 20230418
  Serious: Yes (Other)
  Sender: FDA-Public Use
  Company Number: BR-JNJFOC-20230250735

PATIENT
  Age: 44 Year
  Sex: Female
  Weight: 84 kg

DRUGS (1)
  1. REMICADE [Suspect]
     Active Substance: INFLIXIMAB
     Indication: Ankylosing spondylitis
     Dosage: LAST INFUSION WAS IN NOVEMBER
     Route: 041

REACTIONS (5)
  - Adrenal neoplasm [Unknown]
  - Pain [Unknown]
  - Gait disturbance [Unknown]
  - Asthenia [Unknown]
  - Malaise [Unknown]
